FAERS Safety Report 16244620 (Version 2)
Quarter: 2019Q2

REPORT INFORMATION
  Report Type: Spontaneous
  Country: US (occurrence: US)
  Receive Date: 20190426
  Receipt Date: 20190507
  Transmission Date: 20190711
  Serious: Yes (Other)
  Sender: FDA-Public Use
  Company Number: US-SA-2019SA109197

PATIENT
  Age: 54 Year
  Sex: Female
  Weight: 57 kg

DRUGS (17)
  1. GABAPENTIN. [Concomitant]
     Active Substance: GABAPENTIN
     Dosage: UNK
     Dates: start: 2012, end: 2018
  2. GLIPIZIDE. [Concomitant]
     Active Substance: GLIPIZIDE
     Indication: DIABETES MELLITUS
     Dosage: 2.5 MG BY MOUTH EVERY MORNING
     Dates: start: 2012
  3. TAXOTERE [Suspect]
     Active Substance: DOCETAXEL
     Indication: BREAST CANCER FEMALE
     Dosage: 115 MG, Q3W
     Route: 042
     Dates: start: 20160218, end: 20160218
  4. ASPIRIN [ACETYLSALICYLIC ACID] [Concomitant]
     Active Substance: ASPIRIN
     Dosage: UNK
     Dates: start: 201001
  5. LISINOPRIL. [Concomitant]
     Active Substance: LISINOPRIL
     Dosage: UNK
     Dates: start: 2012
  6. HYDROCODONE [Concomitant]
     Active Substance: HYDROCODONE
     Dosage: 5-325 MG; 1 TABLET BY MOUTH EVERY 6 HOURS AS NEEDED FOR PAIN
  7. COMPAZINE [Concomitant]
     Active Substance: PROCHLORPERAZINE MALEATE
     Indication: VOMITING
  8. TAXOTERE [Suspect]
     Active Substance: DOCETAXEL
     Dosage: 115 MG, Q3W
     Route: 042
     Dates: start: 20160602, end: 20160602
  9. ALBUTEROL [SALBUTAMOL] [Concomitant]
     Active Substance: ALBUTEROL
     Indication: ASTHMA
     Dosage: 2 PUFFS THROUGH MOUTH EVERY 6 HOURS AS NEEDED
     Route: 055
     Dates: start: 201001
  10. NOVOLOG [Concomitant]
     Active Substance: INSULIN ASPART
     Indication: DIABETES MELLITUS
     Dosage: 100 UNIT/ML INJECTION; 3 TIMES DAILY FOR DIABETES
  11. LIDOCAINE/PRILOCAINE [Concomitant]
     Active Substance: LIDOCAINE\PRILOCAINE
     Dosage: APPLIED TOPICALLY TO PORT SITE ONE HOUR PRIOR TO ACCESS
  12. ZYPREXA [Concomitant]
     Active Substance: OLANZAPINE
     Dosage: 1 TABLET BY MOUTH NIGHTLY
  13. ZOFRAN [Concomitant]
     Active Substance: ONDANSETRON HYDROCHLORIDE
     Dosage: 1 TABLET BY MOUTH EVERY 8 HOURS AS NEEDED FOR NAUSEA
  14. ASCORBIC ACID. [Concomitant]
     Active Substance: ASCORBIC ACID
     Dosage: 1000 MG BY MOUTH DAILY
  15. PARAPLATIN [Concomitant]
     Active Substance: CARBOPLATIN
  16. DOCUSATE SODIUM. [Concomitant]
     Active Substance: DOCUSATE SODIUM
     Dosage: CAPSULE BY MOUTH DAILY
  17. COMPAZINE [Concomitant]
     Active Substance: PROCHLORPERAZINE MALEATE
     Indication: NAUSEA
     Dosage: 1 TABLET BY MOUTH EVERY 6 HOURS AS NEEDED

REACTIONS (2)
  - Alopecia [Recovering/Resolving]
  - Psychological trauma [Unknown]

NARRATIVE: CASE EVENT DATE: 20161202
